FAERS Safety Report 26201715 (Version 2)
Quarter: 2025Q4

REPORT INFORMATION
  Report Type: Spontaneous
  Country: JP (occurrence: JP)
  Receive Date: 20251226
  Receipt Date: 20251229
  Transmission Date: 20260117
  Serious: Yes (Hospitalization, Other)
  Sender: Vantive US Healthcare
  Company Number: JP-VANTIVE-2025VAN005290

PATIENT
  Sex: Male

DRUGS (3)
  1. REGUNEAL LCA [Suspect]
     Active Substance: CALCIUM CHLORIDE\DEXTROSE MONOHYDRATE\HYDROCHLORIC ACID\MAGNESIUM CHLORIDE\SODIUM BICARBONATE\SODIUM
     Dosage: 1.5L?3?1.5 L
     Dates: start: 20250201, end: 20251101
  2. EXTRANEAL [Suspect]
     Active Substance: CALCIUM CHLORIDE\ICODEXTRIN\MAGNESIUM CHLORIDE\SODIUM CHLORIDE\SODIUM LACTATE
     Dosage: 1.5L
     Dates: start: 20250314, end: 20251101
  3. MIZORIBINE [Concomitant]
     Active Substance: MIZORIBINE
     Indication: Renal transplant
     Dosage: 50 ONCE DAILY AFTER BREAKFAST
     Dates: start: 20250820, end: 20251105

REACTIONS (6)
  - Peritonitis bacterial [Recovered/Resolved]
  - Peritoneal cloudy effluent [Recovered/Resolved]
  - Abdominal pain [Recovered/Resolved]
  - Opportunistic infection [Recovered/Resolved]
  - Peritoneal dialysis complication [Unknown]
  - Urine output decreased [Unknown]
